FAERS Safety Report 22034588 (Version 1)
Quarter: 2023Q1

REPORT INFORMATION
  Report Type: Spontaneous
  Country: CA (occurrence: CA)
  Receive Date: 20230224
  Receipt Date: 20230224
  Transmission Date: 20230418
  Serious: Yes (Other)
  Sender: FDA-Public Use
  Company Number: E2B_01689863

PATIENT
  Age: 43 Year
  Sex: Male
  Weight: 93 kg

DRUGS (6)
  1. TRAMADOL HYDROCHLORIDE [Suspect]
     Active Substance: TRAMADOL HYDROCHLORIDE
     Indication: Product used for unknown indication
  2. BACLOFEN [Suspect]
     Active Substance: BACLOFEN
     Indication: Product used for unknown indication
  3. BILASTINE [Concomitant]
     Active Substance: BILASTINE
     Indication: Product used for unknown indication
  4. EPIPEN [Suspect]
     Active Substance: EPINEPHRINE
     Indication: Chronic spontaneous urticaria
     Route: 030
  5. OMALIZUMAB [Suspect]
     Active Substance: OMALIZUMAB
     Indication: Chronic spontaneous urticaria
  6. ZANTAC [Concomitant]
     Active Substance: RANITIDINE HYDROCHLORIDE
     Indication: Product used for unknown indication

REACTIONS (28)
  - Inappropriate schedule of product administration [Not Recovered/Not Resolved]
  - Incorrect dose administered [Unknown]
  - Influenza [Not Recovered/Not Resolved]
  - Lip swelling [Unknown]
  - Migraine [Unknown]
  - Off label use [Unknown]
  - Palpitations [Unknown]
  - Product dose omission issue [Unknown]
  - Pruritus [Unknown]
  - Pyrexia [Unknown]
  - Asthma [Unknown]
  - Rash [Unknown]
  - Rhinorrhoea [Unknown]
  - Road traffic accident [Unknown]
  - SARS-CoV-2 test false positive [Unknown]
  - Seasonal allergy [Unknown]
  - Sleep disorder [Unknown]
  - Somnolence [Unknown]
  - Swollen tongue [Unknown]
  - Urticaria [Unknown]
  - Weight decreased [Unknown]
  - Bronchitis [Unknown]
  - Cough [Unknown]
  - Drug hypersensitivity [Not Recovered/Not Resolved]
  - Dyspnoea [Unknown]
  - Eye swelling [Not Recovered/Not Resolved]
  - Fatigue [Unknown]
  - Hypersensitivity [Unknown]
